FAERS Safety Report 6154405-1 (Version None)
Quarter: 2009Q2

REPORT INFORMATION
  Report Type: 
  Country: None (occurrence: None)
  Receive Date: 20090414
  Receipt Date: 20090403
  Transmission Date: 20091009
  Serious: No
  Sender: FDA-Public Use
  Company Number: IE-ELI_LILLY_AND_COMPANY-IE200901001187

PATIENT
  Sex: Female

DRUGS (2)
  1. FORTEO [Suspect]
     Dosage: UNK, UNKNOWN
     Route: 058
  2. CORTICOSTEROIDS [Concomitant]
     Indication: SARCOIDOSIS
     Dosage: UNK, UNKNOWN
     Route: 065

REACTIONS (3)
  - ANAPHYLACTOID REACTION [None]
  - HEADACHE [None]
  - PARAESTHESIA [None]
